FAERS Safety Report 9385040 (Version 1)
Quarter: 2013Q3

REPORT INFORMATION
  Report Type: Spontaneous
  Country: US (occurrence: US)
  Receive Date: 20130705
  Receipt Date: 20130705
  Transmission Date: 20140515
  Serious: Yes (Other)
  Sender: FDA-Public Use
  Company Number: US-ASTRAZENECA-2013SE34917

PATIENT
  Age: 79 Year
  Sex: Female
  Weight: 79.4 kg

DRUGS (5)
  1. BRILINTA [Suspect]
     Indication: STENT PLACEMENT
     Route: 048
     Dates: start: 2013, end: 2013
  2. METOPROLOL [Suspect]
     Route: 065
  3. ASA [Concomitant]
  4. LIPITOR [Concomitant]
  5. AMLODIPINE [Concomitant]

REACTIONS (1)
  - Dyspnoea [Recovered/Resolved]
